FAERS Safety Report 8508716-2 (Version None)
Quarter: 2012Q3

REPORT INFORMATION
  Report Type: 
  Country: None (occurrence: None)
  Receive Date: 20120713
  Receipt Date: 20120706
  Transmission Date: 20120928
  Serious: No
  Sender: FDA-Public Use
  Company Number: US-PFIZER INC-2012163751

PATIENT
  Age: 43 Year
  Sex: Female
  Weight: 69.388 kg

DRUGS (4)
  1. DIFLUCAN [Suspect]
     Indication: FUNGAL INFECTION
     Dosage: 1 DF, UNK
  2. ESTRACE [Interacting]
     Dosage: UNK
  3. PREVACID [Interacting]
     Indication: DYSPEPSIA
     Dosage: 15 MG, 1X/DAY
     Route: 048
     Dates: start: 20120101
  4. CLINDAMYCIN [Concomitant]
     Dosage: UNK

REACTIONS (12)
  - GASTRIC DISORDER [None]
  - TREATMENT NONCOMPLIANCE [None]
  - DECREASED APPETITE [None]
  - DRUG INTERACTION [None]
  - MOUTH ULCERATION [None]
  - DYSPEPSIA [None]
  - WEIGHT DECREASED [None]
  - FUNGAL INFECTION [None]
  - TONSILLAR CYST [None]
  - DRUG INEFFECTIVE FOR UNAPPROVED INDICATION [None]
  - MALAISE [None]
  - INCORRECT DRUG ADMINISTRATION DURATION [None]
